FAERS Safety Report 9961933 (Version 1)
Quarter: 2014Q1

REPORT INFORMATION
  Report Type: Report from Study
  Country: US (occurrence: US)
  Receive Date: 20140305
  Receipt Date: 20140305
  Transmission Date: 20141002
  Serious: No
  Sender: FDA-Public Use
  Company Number: US-ABBVIE-13P-163-1111622-00

PATIENT
  Age: 43 Year
  Sex: Female
  Weight: 63.56 kg

DRUGS (8)
  1. HUMIRA [Suspect]
     Indication: ANKYLOSING SPONDYLITIS
     Dates: end: 201306
  2. HUMIRA [Suspect]
     Dates: start: 201306
  3. LAMICTAL [Concomitant]
     Indication: AFFECTIVE DISORDER
  4. LEXAPRO [Concomitant]
     Indication: DEPRESSION
  5. GABAPENTIN [Concomitant]
     Indication: ANXIETY
  6. LORAZEPAM [Concomitant]
     Indication: ANXIETY
  7. PROTONIX [Concomitant]
     Indication: GASTROOESOPHAGEAL REFLUX DISEASE
  8. PEPCID [Concomitant]
     Indication: GASTROOESOPHAGEAL REFLUX DISEASE

REACTIONS (6)
  - Oropharyngeal pain [Not Recovered/Not Resolved]
  - Pain [Not Recovered/Not Resolved]
  - Inappropriate schedule of drug administration [Not Recovered/Not Resolved]
  - Back pain [Not Recovered/Not Resolved]
  - Arthralgia [Not Recovered/Not Resolved]
  - Drug effect decreased [Not Recovered/Not Resolved]
